FAERS Safety Report 14564081 (Version 4)
Quarter: 2018Q1

REPORT INFORMATION
  Report Type: Spontaneous
  Country: CH (occurrence: CH)
  Receive Date: 20180222
  Receipt Date: 20180306
  Transmission Date: 20180509
  Serious: Yes (Life-Threatening, Hospitalization, Other)
  Sender: FDA-Public Use
  Company Number: CH-PFIZER INC-2018074337

PATIENT
  Age: 75 Year
  Sex: Female

DRUGS (26)
  1. PANTOZOL [Suspect]
     Active Substance: PANTOPRAZOLE SODIUM
     Dosage: 40 MG, 1X/DAY 1-0-0
     Route: 048
     Dates: start: 20180104, end: 201801
  2. CEFEPIME [Suspect]
     Active Substance: CEFEPIME HYDROCHLORIDE
     Indication: OSTEOMYELITIS BACTERIAL
     Dosage: 2 G, Q12H (IN 100ML NACL 0.9% EVERY 12 HOURS (8H - 20H))
     Route: 042
     Dates: start: 20171222, end: 20180108
  3. LORAZEPAM. [Concomitant]
     Active Substance: LORAZEPAM
     Dosage: UNK
     Route: 048
  4. LEVETIRACETAM. [Concomitant]
     Active Substance: LEVETIRACETAM
     Dosage: UNK
  5. NOCTAMID [Concomitant]
     Active Substance: LORMETAZEPAM
     Dosage: UNK
     Dates: start: 201801
  6. FRAGMIN [Concomitant]
     Active Substance: DALTEPARIN SODIUM
     Dosage: 5000 IU(IE), 1X/DAY (EVENING)
     Route: 058
     Dates: start: 201712
  7. PROPRANOLOL HYDROCHLORIDE. [Concomitant]
     Active Substance: PROPRANOLOL HYDROCHLORIDE
     Dosage: 25 MG, QD
     Dates: start: 20171204
  8. TEMESTA /00273201/ [Concomitant]
     Active Substance: LORAZEPAM
     Dosage: 1 MG, 0-0-0-4 (ON THE WARD IN REDUCED DOSE)
     Route: 048
  9. SPASMO-URGENIN NEO [Concomitant]
     Active Substance: TROSPIUM
     Dosage: UNK
     Dates: start: 20180129
  10. TOREM /01036501/ [Concomitant]
     Active Substance: TORSEMIDE
     Dosage: 10 MG, 1X/DAY 1-0-0
  11. PRADIF T [Concomitant]
     Active Substance: TAMSULOSIN HYDROCHLORIDE
     Dosage: 1 DF, 1X/DAY 0-0-1
     Dates: start: 201712, end: 20180108
  12. REMERON [Suspect]
     Active Substance: MIRTAZAPINE
     Indication: DEPRESSION
     Dosage: 30 MG, 1X/DAY 0-0-0-1
     Route: 048
     Dates: start: 201712, end: 20180108
  13. ASPIRIN CARDIO [Suspect]
     Active Substance: ASPIRIN
     Dosage: 100 MG, QD 1-0-0
     Route: 048
     Dates: start: 201712, end: 20180109
  14. IMAZOL /01492601/ [Concomitant]
     Dosage: UNK, BID 1-0-1
     Route: 061
     Dates: start: 20180108, end: 20180109
  15. DUPHALAC [Concomitant]
     Active Substance: LACTULOSE
     Dosage: 1 DF, 1X/DAY -0 -0
     Dates: start: 201701, end: 20180109
  16. BELOC /00376902/ [Concomitant]
     Active Substance: METOPROLOL TARTRATE
     Dosage: 25 MG, 1X/DAY 1-0-0
     Dates: start: 201712
  17. NOVALGIN (METAMIZOLE SODIUM) [Suspect]
     Active Substance: METAMIZOLE SODIUM
     Dosage: 500 MG, 4X/DAY
     Route: 065
     Dates: start: 20180108, end: 20180109
  18. FENISTIL [Concomitant]
     Active Substance: DIMETHINDENE
     Dosage: UNK, TID 1-1-1
     Route: 061
     Dates: start: 20180108, end: 20180109
  19. DEANXIT [Concomitant]
     Active Substance: FLUPENTIXOL DIHYDROCHLORIDE\MELITRACEN HYDROCHLORIDE
     Dosage: 2 DF, 2X/DAY 2-0-2
     Route: 048
     Dates: start: 201712, end: 20180109
  20. CODEIN KNOLL [Concomitant]
     Active Substance: CODEINE PHOSPHATE
     Dosage: 50 MG, 3X/DAY 1-0-1-1
     Dates: start: 201712, end: 20180109
  21. PREGABALIN PFIZER [Suspect]
     Active Substance: PREGABALIN
     Dosage: 75 MG, 1X/DAY 0-0-0-1
     Route: 048
     Dates: start: 201712, end: 20180108
  22. NOZINAN [Suspect]
     Active Substance: LEVOMEPROMAZINE
     Dosage: 25 MG, 1X/DAY 0-0-0-1
     Route: 048
     Dates: start: 201712, end: 20180108
  23. SPASMO-URGENIN NEO [Concomitant]
     Active Substance: TROSPIUM
     Dosage: 1 DF, 2X/DAY 1-0-1
     Dates: start: 20180104
  24. ACIDUM FOLICUM [Concomitant]
     Active Substance: FOLIC ACID
     Dosage: 5 MG, QD
     Dates: start: 201712, end: 20180109
  25. TOREM /01036501/ [Concomitant]
     Active Substance: TORSEMIDE
     Dosage: 10 MG, 1X/DAY 1-0-0
     Dates: start: 201712
  26. NOCTAMID [Concomitant]
     Active Substance: LORMETAZEPAM
     Dosage: UNK
     Dates: end: 201712

REACTIONS (10)
  - Acute kidney injury [Recovering/Resolving]
  - Myoclonus [Recovered/Resolved]
  - Toxicity to various agents [Recovered/Resolved]
  - Tonic clonic movements [Recovered/Resolved]
  - Renal tubular necrosis [Recovering/Resolving]
  - Generalised tonic-clonic seizure [Recovered/Resolved]
  - Encephalopathy [Recovered/Resolved]
  - Status epilepticus [Recovered/Resolved]
  - Disturbance in attention [Recovered/Resolved]
  - Aphasia [Recovered/Resolved]

NARRATIVE: CASE EVENT DATE: 20180109
